FAERS Safety Report 10472848 (Version 1)
Quarter: 2014Q3

REPORT INFORMATION
  Report Type: Spontaneous
  Country: FR (occurrence: FR)
  Receive Date: 20140924
  Receipt Date: 20140924
  Transmission Date: 20150326
  Serious: Yes (Hospitalization)
  Sender: FDA-Public Use
  Company Number: FR-SA-2014SA130781

PATIENT
  Age: 22 Year
  Sex: Female

DRUGS (12)
  1. BIPROFENID [Suspect]
     Active Substance: KETOPROFEN
     Indication: PAIN
     Route: 065
     Dates: start: 20130117, end: 20130119
  2. TETRAZEPAM [Suspect]
     Active Substance: TETRAZEPAM
     Route: 065
     Dates: start: 20130117, end: 20130121
  3. CONTRAMAL [Suspect]
     Active Substance: TRAMADOL HYDROCHLORIDE
     Indication: PAIN
     Route: 065
     Dates: start: 20130115, end: 20130717
  4. KARDEGIC [Concomitant]
     Active Substance: ASPIRIN LYSINE
     Dates: start: 20130118
  5. ARIXTRA [Suspect]
     Active Substance: FONDAPARINUX SODIUM
     Route: 065
     Dates: start: 20130117, end: 20130121
  6. SKENAN [Suspect]
     Active Substance: MORPHINE SULFATE
     Indication: PAIN
     Route: 065
     Dates: start: 20130117, end: 20130123
  7. ACUPAN [Concomitant]
     Active Substance: NEFOPAM HYDROCHLORIDE
     Indication: BACK PAIN
     Dates: start: 20130116, end: 20130119
  8. INEXIUM [Suspect]
     Active Substance: ESOMEPRAZOLE
     Route: 065
     Dates: start: 20130117, end: 20130119
  9. LOVENOX [Suspect]
     Active Substance: ENOXAPARIN SODIUM
     Route: 065
     Dates: start: 20130115, end: 20130117
  10. DOLIPRANE [Concomitant]
     Active Substance: ACETAMINOPHEN
     Dates: start: 20130115, end: 20130122
  11. ALTEPLASE [Concomitant]
     Active Substance: ALTEPLASE
     Route: 042
     Dates: start: 20130116, end: 20130116
  12. ACTISKENAN [Suspect]
     Active Substance: MORPHINE SULFATE
     Indication: PAIN
     Route: 065
     Dates: start: 20130117, end: 20130123

REACTIONS (2)
  - Hepatocellular injury [Recovering/Resolving]
  - Cholestasis [Recovering/Resolving]

NARRATIVE: CASE EVENT DATE: 20130119
